FAERS Safety Report 8252253-X (Version None)
Quarter: 2012Q2

REPORT INFORMATION
  Report Type: 
  Country: None (occurrence: None)
  Receive Date: 20120402
  Receipt Date: 20110915
  Transmission Date: 20120825
  Serious: No
  Sender: FDA-Public Use
  Company Number: US-ABBOTT-11P-163-0855182-00

PATIENT
  Sex: Female
  Weight: 46.308 kg

DRUGS (5)
  1. DIAZEPAM [Concomitant]
     Indication: ANXIETY
  2. UNKNOWN HIGH BLOOD PRESSURE MEDICATION [Concomitant]
     Indication: HYPERTENSION
  3. ANDROGEL [Suspect]
     Indication: VAGINAL HAEMORRHAGE
     Dates: start: 20110611, end: 20110613
  4. LIPITOR [Concomitant]
     Indication: BLOOD CHOLESTEROL INCREASED
  5. SPIRIVA [Concomitant]
     Indication: EMPHYSEMA

REACTIONS (4)
  - BURNING SENSATION [None]
  - VULVOVAGINAL SWELLING [None]
  - VULVOVAGINAL BURNING SENSATION [None]
  - OEDEMA PERIPHERAL [None]
